FAERS Safety Report 25648377 (Version 1)
Quarter: 2025Q3

REPORT INFORMATION
  Report Type: Report from Study
  Country: CA (occurrence: CA)
  Receive Date: 20250806
  Receipt Date: 20250806
  Transmission Date: 20251021
  Serious: Yes (Death, Other)
  Sender: CSL BEHRING
  Company Number: CA-BEH-2025215002

PATIENT
  Age: 72 Year
  Sex: Female
  Weight: 78 kg

DRUGS (15)
  1. HIZENTRA [Suspect]
     Active Substance: HUMAN IMMUNOGLOBULIN G
     Indication: Secondary immunodeficiency
     Dosage: 16 G, QW
     Route: 065
     Dates: start: 20230126
  2. HYDROMORPHONE [Concomitant]
     Active Substance: HYDROMORPHONE
  3. BISOPROLOL [Concomitant]
     Active Substance: BISOPROLOL
  4. XARELTO [Concomitant]
     Active Substance: RIVAROXABAN
  5. DULOXETINE [Concomitant]
     Active Substance: DULOXETINE
  6. AMLODIPINE [Concomitant]
     Active Substance: AMLODIPINE BESYLATE
  7. DIGOXIN [Concomitant]
     Active Substance: DIGOXIN
  8. PANTOPRAZOLE [Concomitant]
     Active Substance: PANTOPRAZOLE
  9. ACETAMINOPHEN [Concomitant]
     Active Substance: ACETAMINOPHEN
  10. QUETIAPINE [Concomitant]
     Active Substance: QUETIAPINE
  11. VALACYCLOVIR [Concomitant]
     Active Substance: VALACYCLOVIR HYDROCHLORIDE
  12. ZOPICLONE [Concomitant]
     Active Substance: ZOPICLONE
  13. CHOLECALCIFEROL [Concomitant]
     Active Substance: CHOLECALCIFEROL
  14. FUROSEMIDE [Concomitant]
     Active Substance: FUROSEMIDE
  15. DEXAMETHASONE [Concomitant]
     Active Substance: DEXAMETHASONE

REACTIONS (1)
  - Death [Fatal]

NARRATIVE: CASE EVENT DATE: 20241215
